FAERS Safety Report 10335007 (Version 1)
Quarter: 2014Q3

REPORT INFORMATION
  Report Type: Spontaneous
  Country: US (occurrence: US)
  Receive Date: 20140723
  Receipt Date: 20140723
  Transmission Date: 20150326
  Serious: Yes (Other)
  Sender: FDA-Public Use
  Company Number: US-BAYER-2014-109116

PATIENT
  Age: 34 Year
  Sex: Female

DRUGS (1)
  1. SKYLA [Suspect]
     Active Substance: LEVONORGESTREL
     Indication: CONTRACEPTION
     Dosage: 14 MCG/24HR, CONT
     Route: 015
     Dates: start: 20130307, end: 20140715

REACTIONS (3)
  - Pain [None]
  - Uterine perforation [None]
  - Complication of device insertion [None]

NARRATIVE: CASE EVENT DATE: 20130307
